FAERS Safety Report 8826740 (Version 6)
Quarter: 2015Q2

REPORT INFORMATION
  Report Type: Report from Study
  Country: US (occurrence: US)
  Receive Date: 20121005
  Receipt Date: 20150424
  Transmission Date: 20150821
  Serious: Yes (Hospitalization, Other)
  Sender: FDA-Public Use
  Company Number: US-GLAXOSMITHKLINE-A0996194A

PATIENT
  Sex: Female

DRUGS (12)
  1. SALBUTAMOL SULPHATE [Suspect]
     Active Substance: ALBUTEROL SULFATE
     Indication: ASTHMA
     Dosage: UNK, U
     Route: 055
  2. SALBUTAMOL SULPHATE [Suspect]
     Active Substance: ALBUTEROL SULFATE
     Indication: CHRONIC OBSTRUCTIVE PULMONARY DISEASE
  3. PREDNISONE. [Suspect]
     Active Substance: PREDNISONE
     Indication: ASTHMA
     Dosage: 20 MG DAILY DOSING
     Route: 048
  4. IMMUNOGLOBULIN G [Concomitant]
     Active Substance: HUMAN IMMUNOGLOBULIN G
  5. FLUTICASONE PROPIONATE+SALMETEROL XINAFOATE [Suspect]
     Active Substance: FLUTICASONE PROPIONATE\SALMETEROL XINAFOATE
     Indication: CHRONIC OBSTRUCTIVE PULMONARY DISEASE
     Dosage: 230 AT UNKNOWN DOSING
     Route: 055
  6. PULMICORT TURBUHALER [Concomitant]
     Active Substance: BUDESONIDE
  7. FLUTICASONE PROPIONATE+SALMETEROL XINAFOATE [Suspect]
     Active Substance: FLUTICASONE PROPIONATE\SALMETEROL XINAFOATE
     Indication: ASTHMA
     Dosage: UNK, U
     Route: 065
  8. FLUTICASONE PROPIONATE+SALMETEROL XINAFOATE [Suspect]
     Active Substance: FLUTICASONE PROPIONATE\SALMETEROL XINAFOATE
     Indication: CHRONIC OBSTRUCTIVE PULMONARY DISEASE
  9. PREDNISONE. [Suspect]
     Active Substance: PREDNISONE
     Dosage: 45 MG, QD
     Route: 065
  10. FLUTICASONE PROPIONATE+SALMETEROL XINAFOATE [Suspect]
     Active Substance: FLUTICASONE PROPIONATE\SALMETEROL XINAFOATE
     Indication: ASTHMA
  11. PREDNISONE. [Suspect]
     Active Substance: PREDNISONE
     Dosage: 60 MG, QD
     Route: 065
  12. SPIRIVA [Concomitant]
     Active Substance: TIOTROPIUM BROMIDE MONOHYDRATE

REACTIONS (52)
  - Endotracheal intubation [Unknown]
  - Cough [Not Recovered/Not Resolved]
  - Dry mouth [Unknown]
  - Erythema [Unknown]
  - Drug ineffective [Unknown]
  - Drug abuse [Not Recovered/Not Resolved]
  - Fear [Unknown]
  - Respiratory tract oedema [Unknown]
  - Central venous catheterisation [Unknown]
  - Bronchitis [Unknown]
  - Nasopharyngitis [Not Recovered/Not Resolved]
  - Confusional state [Unknown]
  - Cognitive disorder [Not Recovered/Not Resolved]
  - Menopause [Not Recovered/Not Resolved]
  - Emotional disorder [Unknown]
  - Feeling abnormal [Unknown]
  - Obesity [Not Recovered/Not Resolved]
  - Pseudomonas infection [Unknown]
  - Medical device complication [Unknown]
  - Oropharyngeal pain [Unknown]
  - Blood glucose increased [Unknown]
  - Weight increased [Unknown]
  - Discomfort [Unknown]
  - Fatigue [Not Recovered/Not Resolved]
  - Staphylococcal infection [Unknown]
  - Asthma [Not Recovered/Not Resolved]
  - Alopecia [Unknown]
  - Swelling face [Unknown]
  - Grief reaction [Unknown]
  - Drug dependence [Unknown]
  - Gastrointestinal fungal infection [Unknown]
  - Sinusitis [Unknown]
  - Alternaria infection [Unknown]
  - Respiratory tract infection fungal [Unknown]
  - Increased appetite [Unknown]
  - Upper respiratory tract infection bacterial [Unknown]
  - Asthmatic crisis [Recovering/Resolving]
  - Arterial disorder [Unknown]
  - Sinus perforation [Unknown]
  - Bacterial infection [Unknown]
  - Pain [Recovered/Resolved]
  - Haemorrhage [Unknown]
  - Fungal infection [Unknown]
  - Viral infection [Unknown]
  - Pharyngeal oedema [Unknown]
  - Insomnia [Unknown]
  - Adverse event [Unknown]
  - Feeling abnormal [Not Recovered/Not Resolved]
  - Sensory disturbance [Not Recovered/Not Resolved]
  - Abdominal distension [Unknown]
  - Asthenia [Recovered/Resolved]
  - Mental disorder [Not Recovered/Not Resolved]

NARRATIVE: CASE EVENT DATE: 20120914
